FAERS Safety Report 18801419 (Version 1)
Quarter: 2021Q1

REPORT INFORMATION
  Report Type: Spontaneous
  Country: CN (occurrence: CN)
  Receive Date: 20210128
  Receipt Date: 20210128
  Transmission Date: 20210419
  Serious: Yes (Other)
  Sender: FDA-Public Use
  Company Number: CN-ASTRAZENECA-2021A008644

PATIENT
  Age: 63 Year
  Sex: Male
  Weight: 96 kg

DRUGS (1)
  1. IMFINZI [Suspect]
     Active Substance: DURVALUMAB
     Indication: NON-SMALL CELL LUNG CANCER STAGE III
     Dosage: LAST DOSE WAS 1000MG/CYCLE, AND THE SPECIFICATION WAS 500MG/10ML.
     Route: 042
     Dates: start: 20200227, end: 20200612

REACTIONS (7)
  - Immune-mediated pneumonitis [Unknown]
  - Blood glucose increased [Unknown]
  - Interstitial lung disease [Not Recovered/Not Resolved]
  - Embolism [Unknown]
  - Pyrexia [Not Recovered/Not Resolved]
  - Cough [Not Recovered/Not Resolved]
  - Radiation pneumonitis [Unknown]

NARRATIVE: CASE EVENT DATE: 202006
